FAERS Safety Report 5958174-7 (Version None)
Quarter: 2008Q4

REPORT INFORMATION
  Report Type: 
  Country: None (occurrence: None)
  Receive Date: 20081119
  Receipt Date: 20081113
  Transmission Date: 20090506
  Serious: Yes (Hospitalization)
  Sender: FDA-Public Use
  Company Number: US-GENENTECH-270408

PATIENT
  Sex: Male
  Weight: 80 kg

DRUGS (10)
  1. BEVACIZUMAB [Suspect]
     Indication: RENAL CELL CARCINOMA
     Dosage: 700 MG, Q2W
     Route: 042
     Dates: start: 20070816, end: 20080917
  2. CLOPIDOGREL BISULFATE [Concomitant]
     Indication: DRUG USE FOR UNKNOWN INDICATION
     Dosage: 75 MG, QD
  3. ACETAMINOPHEN [Concomitant]
     Indication: PAIN
     Dosage: 500 MG, PRN
     Route: 048
  4. PROCHLORPERAZINE MALEATE [Concomitant]
     Indication: NAUSEA
     Dosage: 1 TABLET, PRN
  5. METOPROLOL TARTRATE [Concomitant]
     Indication: BLOOD PRESSURE
     Dosage: 2 TABLET, UNK
  6. LISINOPRIL [Concomitant]
     Indication: BLOOD PRESSURE
     Dosage: 1 TABLET, QD
  7. LEVOTHYROXINE SODIUM [Concomitant]
     Indication: DRUG USE FOR UNKNOWN INDICATION
     Dosage: 1 TABLET, QD
  8. AMLODIPINE [Concomitant]
     Indication: BLOOD PRESSURE
     Dosage: 5 MG, QD
  9. FAMOTIDINE [Concomitant]
     Indication: DYSPEPSIA
     Dosage: 1 TABLET, QD
  10. HYDROMORPHONE HCL [Concomitant]
     Indication: CHILLS
     Dosage: 2 MG, PRN

REACTIONS (1)
  - CORONARY ARTERY DISEASE [None]
